FAERS Safety Report 8823801 (Version 2)
Quarter: 2014Q2

REPORT INFORMATION
  Report Type: Spontaneous
  Country: US (occurrence: US)
  Receive Date: 20121003
  Receipt Date: 20131024
  Transmission Date: 20141212
  Serious: No
  Sender: FDA-Public Use
  Company Number: US-PFIZER INC-2012243987

PATIENT
  Age: 46 Year
  Sex: Female
  Weight: 52.15 kg

DRUGS (1)
  1. METHOTREXATE SODIUM [Suspect]
     Indication: CROHN^S DISEASE
     Dosage: 25 MG, WEEKLY
     Route: 030
     Dates: start: 200609, end: 20121001

REACTIONS (2)
  - Incorrect route of drug administration [Unknown]
  - Hepatic enzyme increased [Unknown]
